FAERS Safety Report 8572329-7 (Version None)
Quarter: 2012Q3

REPORT INFORMATION
  Report Type: 
  Country: None (occurrence: None)
  Receive Date: 20120806
  Receipt Date: 20100716
  Transmission Date: 20120928
  Serious: Yes (Death, Other)
  Sender: FDA-Public Use
  Company Number: CO-PFIZER INC-2012188200

PATIENT
  Age: 77 Year
  Sex: Female

DRUGS (6)
  1. OLMESARTAN MEDOXOMIL AND HYDROCHLOROTHIZIDE [Suspect]
     Indication: HYPERTENSION
     Dosage: 1 DF, 1X/DAY
  2. METFORMIN [Concomitant]
     Dosage: 850 MG, 2X/DAY
  3. ACETYLSALICYLIC ACID [Concomitant]
     Dosage: 100 MG, 1X/DAY
  4. GLIBENCLAMIDE [Concomitant]
     Dosage: 5 MG, 3X/DAY
  5. NORVASC [Suspect]
     Indication: HYPERTENSION
     Dosage: 10 MG, 1X/DAY
  6. LIPITOR [Suspect]
     Indication: DYSLIPIDAEMIA
     Dosage: 10 MG, 1X/DAY

REACTIONS (3)
  - DEATH [None]
  - RENAL FAILURE CHRONIC [None]
  - ACUTE MYOCARDIAL INFARCTION [None]
